FAERS Safety Report 5859434-0 (Version None)
Quarter: 2008Q3

REPORT INFORMATION
  Report Type: 
  Country: None (occurrence: None)
  Receive Date: 20080826
  Receipt Date: 20080826
  Transmission Date: 20090109
  Serious: Yes (Hospitalization)
  Sender: FDA-Public Use
  Company Number: None

PATIENT
  Age: 39 Year
  Sex: Female
  Weight: 122.4712 kg

DRUGS (2)
  1. BYETTA [Suspect]
     Indication: APPETITE DISORDER
     Dosage: 5 MCG 2X DAY SQ
     Route: 058
     Dates: start: 20080815, end: 20080819
  2. BYETTA [Suspect]
     Indication: TYPE 2 DIABETES MELLITUS
     Dosage: 5 MCG 2X DAY SQ
     Route: 058
     Dates: start: 20080815, end: 20080819

REACTIONS (7)
  - ABDOMINAL PAIN [None]
  - ASTHENIA [None]
  - DYSPEPSIA [None]
  - HYPERHIDROSIS [None]
  - NAUSEA [None]
  - PYREXIA [None]
  - VOMITING [None]
